FAERS Safety Report 11582558 (Version 1)
Quarter: 2015Q4

REPORT INFORMATION
  Report Type: Spontaneous
  Country: US (occurrence: US)
  Receive Date: 20151001
  Receipt Date: 20151001
  Transmission Date: 20160304
  Serious: No
  Sender: FDA-Public Use
  Company Number: US-ROCHE-675634

PATIENT
  Age: 52 Year
  Sex: Male

DRUGS (4)
  1. RIBAVIRIN. [Suspect]
     Active Substance: RIBAVIRIN
     Indication: HEPATITIS C
     Route: 065
     Dates: start: 200903, end: 200908
  2. METHADONE [Suspect]
     Active Substance: METHADONE HYDROCHLORIDE
     Indication: PRODUCT USED FOR UNKNOWN INDICATION
     Route: 065
  3. NEUPOGEN [Concomitant]
     Active Substance: FILGRASTIM
     Route: 065
  4. PEGASYS [Suspect]
     Active Substance: PEGINTERFERON ALFA-2A
     Indication: HEPATITIS C
     Route: 065
     Dates: start: 200903, end: 200908

REACTIONS (4)
  - Depression [Unknown]
  - Alanine aminotransferase decreased [Unknown]
  - White blood cell count decreased [Unknown]
  - Aspartate aminotransferase decreased [Unknown]

NARRATIVE: CASE EVENT DATE: 200907
